FAERS Safety Report 21058446 (Version 2)
Quarter: 2022Q3

REPORT INFORMATION
  Report Type: Report from Study
  Country: US (occurrence: US)
  Receive Date: 20220708
  Receipt Date: 20220915
  Transmission Date: 20221026
  Serious: No
  Sender: FDA-Public Use
  Company Number: US-NOVARTISTESTPH-NVSC2022US154925

PATIENT
  Age: 10 Year
  Sex: Male

DRUGS (1)
  1. COSENTYX [Suspect]
     Active Substance: SECUKINUMAB
     Indication: Psoriasis
     Dosage: 1 DOSAGE FORM, QMO, (4 WEEKS)
     Route: 065
     Dates: start: 20220512

REACTIONS (1)
  - Off label use [Recovering/Resolving]

NARRATIVE: CASE EVENT DATE: 20220512
